FAERS Safety Report 11164400 (Version 1)
Quarter: 2015Q2

REPORT INFORMATION
  Report Type: Report from Study
  Country: US (occurrence: US)
  Receive Date: 20150604
  Receipt Date: 20150604
  Transmission Date: 20150821
  Serious: Yes (Other)
  Sender: FDA-Public Use
  Company Number: US-GLAXOSMITHKLINE-Z0021060B

PATIENT
  Age: 68 Year
  Sex: Male
  Weight: 95.2 kg

DRUGS (5)
  1. TRAMETINIB [Suspect]
     Active Substance: TRAMETINIB
     Indication: MALIGNANT MELANOMA
     Dosage: 2 MG, QD
     Route: 048
     Dates: start: 20130726
  2. LIDOCAINE. [Concomitant]
     Active Substance: LIDOCAINE
     Indication: SQUAMOUS CELL CARCINOMA
     Dosage: 0.5 %, SINGLE
     Route: 058
     Dates: start: 20140122, end: 20140122
  3. EPINEPHRINE. [Concomitant]
     Active Substance: EPINEPHRINE
     Indication: SQUAMOUS CELL CARCINOMA
     Route: 058
     Dates: start: 20140122, end: 20140122
  4. DABRAFENIB [Suspect]
     Active Substance: DABRAFENIB
     Indication: MALIGNANT MELANOMA
     Dosage: 150 MG, BID
     Route: 048
     Dates: start: 20130725
  5. TRAMETINIB [Suspect]
     Active Substance: TRAMETINIB
     Dosage: 1.5 MG, QD
     Dates: start: 20130917

REACTIONS (1)
  - Squamous cell carcinoma [Recovered/Resolved]

NARRATIVE: CASE EVENT DATE: 20131226
